FAERS Safety Report 4848742-8 (Version None)
Quarter: 2005Q4

REPORT INFORMATION
  Report Type: 
  Country: None (occurrence: None)
  Receive Date: 20051206
  Receipt Date: 20051123
  Transmission Date: 20060501
  Serious: Yes (Other)
  Sender: FDA-Public Use
  Company Number: 2005162388

PATIENT
  Age: 14 Year
  Sex: Male

DRUGS (2)
  1. PHENYTOIN SODIUM [Suspect]
     Indication: CONVULSION
  2. VALPROATE SODIUM [Suspect]
     Indication: CONVULSION

REACTIONS (4)
  - BLOOD SODIUM DECREASED [None]
  - BLOOD UREA INCREASED [None]
  - CEREBRAL PARENCHYMAL CALCIFICATION [None]
  - HYPOPARATHYROIDISM [None]
